FAERS Safety Report 16685835 (Version 2)
Quarter: 2019Q3

REPORT INFORMATION
  Report Type: Spontaneous
  Country: RU (occurrence: RU)
  Receive Date: 20190809
  Receipt Date: 20190822
  Transmission Date: 20191004
  Serious: Yes (Death)
  Sender: FDA-Public Use
  Company Number: RU-ABBVIE-19K-251-2882779-00

PATIENT
  Age: 62 Year
  Sex: Female

DRUGS (1)
  1. VENCLEXTA [Suspect]
     Active Substance: VENETOCLAX
     Indication: CHRONIC LYMPHOCYTIC LEUKAEMIA
     Route: 048
     Dates: start: 20170105, end: 20181220

REACTIONS (2)
  - Off label use [Recovered/Resolved]
  - Richter^s syndrome [Fatal]

NARRATIVE: CASE EVENT DATE: 20170105
